FAERS Safety Report 14995656 (Version 2)
Quarter: 2018Q4

REPORT INFORMATION
  Report Type: Spontaneous
  Country: US (occurrence: US)
  Receive Date: 20180611
  Receipt Date: 20181102
  Transmission Date: 20190204
  Serious: Yes (Other)
  Sender: FDA-Public Use
  Company Number: US-ASTELLAS-2018US025703

PATIENT
  Age: 80 Year
  Sex: Female

DRUGS (1)
  1. MYRBETRIQ [Suspect]
     Active Substance: MIRABEGRON
     Indication: PRODUCT USED FOR UNKNOWN INDICATION
     Route: 065
     Dates: start: 201805

REACTIONS (5)
  - Bladder prolapse [Unknown]
  - Sleep disorder [Unknown]
  - Muscle spasms [Unknown]
  - Dizziness [Unknown]
  - Diarrhoea [Unknown]
